FAERS Safety Report 9708568 (Version 2)
Quarter: 2014Q1

REPORT INFORMATION
  Report Type: Spontaneous
  Country: US (occurrence: None)
  Receive Date: 20131121
  Receipt Date: 20140131
  Transmission Date: 20141002
  Serious: Yes (Hospitalization)
  Sender: FDA-Public Use
  Company Number: US-000858

PATIENT
  Age: 62 Year
  Sex: Female

DRUGS (2)
  1. GATTEX [Suspect]
     Indication: SHORT-BOWEL SYNDROME
     Dosage: 0.24 ML QD, STREN/VOLUM:  0.24\FREQU: DAILY SUBCUTANEOUS)?
     Route: 058
     Dates: start: 20130808, end: 201310
  2. SOLUTIONS FOR PARENTERAL NUTRITION [Concomitant]

REACTIONS (2)
  - Cystitis [None]
  - Disease recurrence [None]
